FAERS Safety Report 15783327 (Version 2)
Quarter: 2020Q3

REPORT INFORMATION
  Report Type: Report from Study
  Country: US (occurrence: US)
  Receive Date: 20190102
  Receipt Date: 20200706
  Transmission Date: 20201102
  Serious: Yes (Hospitalization, Other)
  Sender: FDA-Public Use
  Company Number: US-SA-2018SA396350

PATIENT

DRUGS (2)
  1. INSULIN GLARGINE [Suspect]
     Active Substance: INSULIN GLARGINE
     Indication: DIABETES MELLITUS
     Dosage: 40 IU, HS (AT NIGHT), SINCE ABOUT 3 YEARS AGO
     Route: 065
     Dates: start: 2015
  2. INSULIN GLARGINE [Suspect]
     Active Substance: INSULIN GLARGINE
     Dosage: 38 IU, QD
     Route: 058

REACTIONS (8)
  - Gastric disorder [Not Recovered/Not Resolved]
  - Cerebrovascular accident [Unknown]
  - Fatigue [Not Recovered/Not Resolved]
  - Coronary artery disease [Unknown]
  - Hypoglycaemia [Unknown]
  - Hyperlipidaemia [Unknown]
  - Insomnia [Unknown]
  - Hypertension [Unknown]

NARRATIVE: CASE EVENT DATE: 201812
